FAERS Safety Report 6523062-4 (Version None)
Quarter: 2009Q4

REPORT INFORMATION
  Report Type: 
  Country: None (occurrence: None)
  Receive Date: 20091222
  Receipt Date: 20091210
  Transmission Date: 20100525
  Serious: No
  Sender: FDA-Public Use
  Company Number: 2009029617

PATIENT
  Sex: Female

DRUGS (2)
  1. FENTORA [Suspect]
     Indication: COLONIC PSEUDO-OBSTRUCTION
     Dosage: BU
     Route: 002
  2. ROXICODONE [Concomitant]

REACTIONS (2)
  - CIRCUMSTANCE OR INFORMATION CAPABLE OF LEADING TO MEDICATION ERROR [None]
  - DRUG PRESCRIBING ERROR [None]
